FAERS Safety Report 23395469 (Version 1)
Quarter: 2024Q1

REPORT INFORMATION
  Report Type: Spontaneous
  Country: DE (occurrence: DE)
  Receive Date: 20240112
  Receipt Date: 20240112
  Transmission Date: 20240409
  Serious: Yes (Hospitalization)
  Sender: FDA-Public Use
  Company Number: DE-PFIZER INC-PV202300208358

PATIENT
  Age: 27 Year
  Sex: Male

DRUGS (7)
  1. OLANZAPINE [Interacting]
     Active Substance: OLANZAPINE
     Indication: Schizophrenia
     Dosage: 200 MILLIGRAM, ONCE A DAY (20 MG, DAILY  UPTO)
     Route: 065
  2. OLANZAPINE [Interacting]
     Active Substance: OLANZAPINE
     Dosage: 25 MILLIGRAM, ONCE A DAY
     Route: 065
  3. CLOZAPINE [Interacting]
     Active Substance: CLOZAPINE
     Indication: Schizophrenia
     Dosage: 350 MILLIGRAM, ONCE A DAY (350 MG, DAILY  (DAY 17))
     Route: 065
  4. CLOZAPINE [Interacting]
     Active Substance: CLOZAPINE
     Dosage: 375 MILLIGRAM, ONCE A DAY (375 MG, DAILY  (DAY 32))
     Route: 065
  5. CLOZAPINE [Interacting]
     Active Substance: CLOZAPINE
     Dosage: 300 MILLIGRAM, ONCE A DAY
     Route: 065
  6. TOZINAMERAN [Interacting]
     Active Substance: TOZINAMERAN
     Indication: COVID-19 immunisation
     Dosage: 2 DOSAGE FORM (TOTAL)
     Route: 065
  7. TOZINAMERAN [Interacting]
     Active Substance: TOZINAMERAN
     Dosage: 1 DOSAGE FORM (SINGLE)
     Route: 065

REACTIONS (2)
  - Drug level below therapeutic [Unknown]
  - Drug interaction [Unknown]
